FAERS Safety Report 8341666-3 (Version None)
Quarter: 2012Q2

REPORT INFORMATION
  Report Type: 
  Country: None (occurrence: None)
  Receive Date: 20120507
  Receipt Date: 20120427
  Transmission Date: 20120825
  Serious: Yes (Hospitalization, Other)
  Sender: FDA-Public Use
  Company Number: US-ASTRAZENECA-2012SE08480

PATIENT
  Age: 73 Year
  Sex: Female

DRUGS (16)
  1. ZESTRIL [Suspect]
     Route: 048
  2. FLEXPEN INSULIN [Concomitant]
  3. FLAGYL [Concomitant]
     Dosage: EVERY EIGHT HOURS
  4. HYDROCHLOROTHIAZIDE [Concomitant]
  5. MIRALAX [Concomitant]
     Dosage: ONE PACK, AS NEEDED
  6. SERTRALINE HYDROCHLORIDE [Concomitant]
  7. PROTONIX [Concomitant]
  8. NARVASC [Concomitant]
  9. LANTUS [Concomitant]
     Dosage: 20 UNITS
  10. SYMBICORT [Suspect]
     Route: 055
  11. PRAVASTATIN [Concomitant]
  12. LEVAQUIN [Concomitant]
  13. PREDNISONE [Concomitant]
  14. XANAX [Concomitant]
     Dosage: AS NEEDED, DAILY
  15. NOVOLOG [Concomitant]
  16. MIRALAX [Concomitant]
     Indication: CONSTIPATION
     Dosage: ONCE OR TWICE DAILY, AS NEEDED

REACTIONS (16)
  - GASTRITIS [None]
  - RENAL CANCER [None]
  - DIABETES MELLITUS [None]
  - COLON CANCER [None]
  - CONSTIPATION [None]
  - EOSINOPHILIC OESOPHAGITIS [None]
  - PNEUMONIA [None]
  - DIVERTICULITIS [None]
  - HAEMORRHOIDS [None]
  - BARRETT'S OESOPHAGUS [None]
  - NEOPLASM MALIGNANT [None]
  - BLADDER CANCER [None]
  - SARCOIDOSIS [None]
  - HYPERTENSION [None]
  - ANXIETY [None]
  - POLYP [None]
